FAERS Safety Report 11551733 (Version 8)
Quarter: 2016Q2

REPORT INFORMATION
  Report Type: Report from Study
  Country: CA (occurrence: CA)
  Receive Date: 20150925
  Receipt Date: 20160509
  Transmission Date: 20160815
  Serious: Yes (Hospitalization, Other)
  Sender: FDA-Public Use
  Company Number: CA-ROCHE-1632753

PATIENT
  Age: 75 Year
  Sex: Male

DRUGS (10)
  1. PREGABALIN. [Concomitant]
     Active Substance: PREGABALIN
     Route: 065
  2. ROSUVASTATIN. [Concomitant]
     Active Substance: ROSUVASTATIN
     Route: 065
  3. JAMP VITAMIN D [Concomitant]
     Dosage: GEL
     Route: 065
  4. ESBRIET [Suspect]
     Active Substance: PIRFENIDONE
     Dosage: 2403 MG DAILY
     Route: 048
     Dates: start: 20150913
  5. ESBRIET [Suspect]
     Active Substance: PIRFENIDONE
     Indication: IDIOPATHIC PULMONARY FIBROSIS
     Dosage: 801 MG DAILY
     Route: 048
     Dates: start: 20150830
  6. ACETYLSALICYLIC ACID [Concomitant]
     Active Substance: ASPIRIN
     Route: 065
  7. JAMP-CALCIUM [Concomitant]
     Route: 065
  8. ESBRIET [Suspect]
     Active Substance: PIRFENIDONE
     Dosage: 1602 MG DAILY
     Route: 048
     Dates: start: 20150906
  9. VITAMIN B12 [Concomitant]
     Active Substance: CYANOCOBALAMIN
     Route: 065
  10. DICETEL [Concomitant]
     Active Substance: PINAVERIUM BROMIDE
     Route: 065

REACTIONS (10)
  - Carbon monoxide diffusing capacity decreased [Unknown]
  - Pulmonary function test decreased [Not Recovered/Not Resolved]
  - Neuropathy peripheral [Unknown]
  - Treatment failure [Unknown]
  - Forced vital capacity decreased [Unknown]
  - Hypotension [Unknown]
  - Fatigue [Unknown]
  - Dyspnoea [Unknown]
  - Dizziness [Unknown]
  - Decreased appetite [Unknown]

NARRATIVE: CASE EVENT DATE: 201509
